FAERS Safety Report 4679427-9 (Version None)
Quarter: 2005Q2

REPORT INFORMATION
  Report Type: 
  Country: None (occurrence: None)
  Receive Date: 20050602
  Receipt Date: 20040323
  Transmission Date: 20051028
  Serious: Yes (Hospitalization, Disabling)
  Sender: FDA-Public Use
  Company Number: 2004AP01905

PATIENT
  Age: 22245 Day
  Sex: Male

DRUGS (15)
  1. IRESSA [Suspect]
     Indication: NON-SMALL CELL LUNG CANCER
     Route: 048
     Dates: start: 20040209, end: 20040308
  2. CISPLATIN [Concomitant]
     Indication: NON-SMALL CELL LUNG CANCER
     Dates: start: 20030210
  3. CISPLATIN [Concomitant]
     Dates: start: 20030624
  4. CISPLATIN [Concomitant]
     Dates: start: 20031104
  5. UFT [Concomitant]
     Indication: NON-SMALL CELL LUNG CANCER
     Dates: start: 20030210
  6. RADIATION [Concomitant]
     Indication: NON-SMALL CELL LUNG CANCER
     Dates: start: 20030210
  7. CARBOPLATIN [Concomitant]
     Dates: start: 20030522
  8. PACLITAXEL [Concomitant]
     Dates: start: 20030522
  9. GEMCITABINE [Concomitant]
     Dates: start: 20030624
  10. VINORELBINE TARTRATE [Concomitant]
     Dates: start: 20030624
  11. AMRUBICIN [Concomitant]
     Dates: start: 20031104
  12. MUCOSTA [Concomitant]
     Indication: GASTRITIS
     Route: 048
     Dates: start: 20030807, end: 20040408
  13. CORTRIL [Concomitant]
     Indication: NELSON'S SYNDROME
     Route: 048
     Dates: start: 20030817, end: 20040308
  14. MYSLEE [Concomitant]
     Indication: INSOMNIA
     Route: 048
     Dates: start: 20030925, end: 20040308
  15. BUP-4 [Concomitant]
     Indication: POLLAKIURIA
     Route: 048
     Dates: start: 20040209, end: 20040308

REACTIONS (2)
  - CEREBRAL HAEMORRHAGE [None]
  - HYPERTENSION [None]
